FAERS Safety Report 16181849 (Version 1)
Quarter: 2019Q2

REPORT INFORMATION
  Report Type: Spontaneous
  Country: US (occurrence: US)
  Receive Date: 20190410
  Receipt Date: 20190410
  Transmission Date: 20190711
  Serious: Yes (Hospitalization)
  Sender: FDA-Public Use
  Company Number: US-UNICHEM PHARMACEUTICALS (USA) INC-UCM201903-000122

PATIENT
  Age: 17 Year
  Sex: Male

DRUGS (3)
  1. SEROQUEL [Concomitant]
     Active Substance: QUETIAPINE FUMARATE
  2. LAMOTRIGINE. [Suspect]
     Active Substance: LAMOTRIGINE
  3. LITHIUM. [Concomitant]
     Active Substance: LITHIUM

REACTIONS (4)
  - Cognitive disorder [Recovering/Resolving]
  - Abnormal behaviour [Recovering/Resolving]
  - Overdose [Unknown]
  - Suicide attempt [Unknown]
